FAERS Safety Report 17045170 (Version 2)
Quarter: 2019Q4

REPORT INFORMATION
  Report Type: Spontaneous
  Country: US (occurrence: US)
  Receive Date: 20191118
  Receipt Date: 20191126
  Transmission Date: 20200122
  Serious: No
  Sender: FDA-Public Use
  Company Number: US-BAYER-2019-201037

PATIENT
  Age: 24 Year
  Sex: Female

DRUGS (2)
  1. MIRENA [Suspect]
     Active Substance: LEVONORGESTREL
     Indication: CONTRACEPTION
  2. MIRENA [Suspect]
     Active Substance: LEVONORGESTREL
     Indication: CONTRACEPTION
     Dosage: 20 MCG/24HR, CONT
     Route: 015
     Dates: start: 20191106, end: 20191106

REACTIONS (6)
  - Hyperhidrosis [Recovered/Resolved]
  - Procedural vomiting [Recovered/Resolved]
  - Complication of device insertion [None]
  - Procedural nausea [Recovered/Resolved]
  - Procedural pain [Recovered/Resolved]
  - Pelvic pain [Recovered/Resolved]

NARRATIVE: CASE EVENT DATE: 20191106
